FAERS Safety Report 7712526-3 (Version None)
Quarter: 2011Q3

REPORT INFORMATION
  Report Type: 
  Country: None (occurrence: None)
  Receive Date: 20110826
  Receipt Date: 20110818
  Transmission Date: 20111222
  Serious: Yes (Other)
  Sender: FDA-Public Use
  Company Number: US-US-EMD SERONO, INC.-7077983

PATIENT
  Sex: Male

DRUGS (1)
  1. REBIF [Suspect]
     Indication: PRODUCT USED FOR UNKNOWN INDICATION
     Route: 058
     Dates: start: 20060807, end: 20110601

REACTIONS (5)
  - HYPOAESTHESIA [None]
  - EXCORIATION [None]
  - COMA [None]
  - BALANCE DISORDER [None]
  - DEPRESSED MOOD [None]
